FAERS Safety Report 13205803 (Version 1)
Quarter: 2017Q1

REPORT INFORMATION
  Report Type: Spontaneous
  Country: JP (occurrence: JP)
  Receive Date: 20170209
  Receipt Date: 20170209
  Transmission Date: 20170428
  Serious: Yes (Death, Hospitalization)
  Sender: FDA-Public Use
  Company Number: JP-NAPPMUNDI-GBR-2017-0043279

PATIENT
  Age: 53 Year
  Sex: Female
  Weight: 48 kg

DRUGS (10)
  1. MECOBALAMIN [Suspect]
     Active Substance: METHYLCOBALAMIN
     Indication: NEUROPATHY PERIPHERAL
     Dosage: UNK
     Route: 065
     Dates: start: 20150105, end: 20161202
  2. ETIZOLAM [Suspect]
     Active Substance: ETIZOLAM
     Indication: INSOMNIA
     Dosage: UNK
     Route: 065
     Dates: start: 20141109, end: 20161222
  3. TEPRENONE [Suspect]
     Active Substance: TEPRENONE
     Indication: GASTRITIS
     Dosage: UNK
     Route: 065
     Dates: start: 20160622, end: 20161202
  4. OXINORM [Suspect]
     Active Substance: OXYCODONE HYDROCHLORIDE
     Indication: CANCER PAIN
     Dosage: UNK UNK, PRN
     Route: 065
     Dates: start: 20161121, end: 20161223
  5. MAGNESIUM OXIDE. [Suspect]
     Active Substance: MAGNESIUM OXIDE
     Indication: CONSTIPATION
     Dosage: UNK
     Route: 065
     Dates: start: 20150105, end: 20161220
  6. PROCHLORPERAZINE MALEATE. [Suspect]
     Active Substance: PROCHLORPERAZINE MALEATE
     Indication: VOMITING
     Dosage: UNK
     Route: 065
     Dates: start: 20161121, end: 20161218
  7. ACETAMINOPHEN. [Suspect]
     Active Substance: ACETAMINOPHEN
     Indication: CANCER PAIN
     Dosage: UNK
     Route: 065
     Dates: start: 20161121, end: 20161130
  8. BROMAZEPAM [Suspect]
     Active Substance: BROMAZEPAM
     Indication: NEUROSIS
     Dosage: UNK
     Route: 065
     Dates: start: 20150206, end: 20161125
  9. OXYCONTIN [Suspect]
     Active Substance: OXYCODONE HYDROCHLORIDE
     Indication: PAIN
     Dosage: 10 MG, BID [10 MG, 2X/DAY]
     Route: 048
     Dates: start: 20161121, end: 20161207
  10. ZOLPIDEM TARTRATE. [Suspect]
     Active Substance: ZOLPIDEM TARTRATE
     Indication: INSOMNIA
     Dosage: UNK
     Route: 065
     Dates: start: 20140205, end: 20160120

REACTIONS (6)
  - Patella fracture [Not Recovered/Not Resolved]
  - Abdominal distension [Unknown]
  - Dizziness [Unknown]
  - Disease progression [Fatal]
  - Fall [Unknown]
  - Ascites [Unknown]

NARRATIVE: CASE EVENT DATE: 20161121
